FAERS Safety Report 20517246 (Version 2)
Quarter: 2022Q1

REPORT INFORMATION
  Report Type: Report from Study
  Country: US (occurrence: US)
  Receive Date: 20220225
  Receipt Date: 20220325
  Transmission Date: 20220423
  Serious: Yes (Hospitalization, Other)
  Sender: FDA-Public Use
  Company Number: US-JAZZ-2022-US-004283

PATIENT
  Age: 57 Year
  Sex: Female

DRUGS (16)
  1. XYREM [Suspect]
     Active Substance: SODIUM OXYBATE
     Indication: Narcolepsy
     Dosage: 2.25 GRAM, QD
     Route: 048
     Dates: start: 201009, end: 201403
  2. XYREM [Suspect]
     Active Substance: SODIUM OXYBATE
     Indication: Cataplexy
     Dosage: 2.25 GRAM, BID
     Route: 048
     Dates: start: 201403, end: 201709
  3. XYREM [Suspect]
     Active Substance: SODIUM OXYBATE
     Indication: Somnolence
     Dosage: 2.25 GRAM, QD
     Route: 048
     Dates: start: 201709, end: 201710
  4. XYREM [Suspect]
     Active Substance: SODIUM OXYBATE
     Dosage: 2.25 GRAM, BID
     Route: 048
     Dates: start: 201710, end: 201908
  5. XYREM [Suspect]
     Active Substance: SODIUM OXYBATE
     Dosage: 1.75 GRAM, QD
     Route: 048
     Dates: start: 201908, end: 202001
  6. XYREM [Suspect]
     Active Substance: SODIUM OXYBATE
     Dosage: 2.25 GRAM, QD
     Route: 048
     Dates: start: 202001
  7. FOLIC ACID [Concomitant]
     Active Substance: FOLIC ACID
     Indication: Product used for unknown indication
     Dosage: UNK
     Dates: start: 20150217
  8. DIETARY SUPPLEMENT [Concomitant]
     Active Substance: DIETARY SUPPLEMENT
     Indication: Product used for unknown indication
     Dosage: FREQUENCY: QD
     Dates: start: 20150217
  9. VITAMINS NOS [Concomitant]
     Active Substance: VITAMINS
     Indication: Product used for unknown indication
     Dosage: FREQUENCY: QD
     Dates: start: 20150217
  10. CALCIUM\CHOLECALCIFEROL [Concomitant]
     Active Substance: CALCIUM\CHOLECALCIFEROL
     Indication: Product used for unknown indication
     Dosage: UNK
     Dates: start: 20150217
  11. ATORVASTATIN [Concomitant]
     Active Substance: ATORVASTATIN
     Indication: Product used for unknown indication
     Dosage: UNK
     Dates: start: 20190201
  12. FLUDROCORTISONE [Concomitant]
     Active Substance: FLUDROCORTISONE
     Indication: Product used for unknown indication
     Dosage: UNK
     Dates: start: 20190201
  13. FLUVOXAMINE MALEATE [Concomitant]
     Active Substance: FLUVOXAMINE MALEATE
     Indication: Product used for unknown indication
     Dosage: UNK
     Dates: start: 20190201
  14. LACTOBACILLUS ACID [Concomitant]
     Indication: Product used for unknown indication
     Dosage: UNK
     Dates: start: 20190201
  15. NIFEDIPINE [Concomitant]
     Active Substance: NIFEDIPINE
     Indication: Product used for unknown indication
     Dosage: UNK
     Dates: start: 20190201
  16. OMEPRAZOLE [Concomitant]
     Active Substance: OMEPRAZOLE
     Indication: Product used for unknown indication
     Dosage: UNK
     Dates: start: 20190201

REACTIONS (6)
  - Dental operation [Unknown]
  - Hypertension [Recovering/Resolving]
  - Diarrhoea [Unknown]
  - Urticaria [Unknown]
  - Micturition urgency [Unknown]
  - Product administration interrupted [Unknown]

NARRATIVE: CASE EVENT DATE: 20190201
